FAERS Safety Report 9109689 (Version 3)
Quarter: 2013Q2

REPORT INFORMATION
  Report Type: Report from Study
  Country: US (occurrence: US)
  Receive Date: 20130222
  Receipt Date: 20130405
  Transmission Date: 20140414
  Serious: Yes (Hospitalization)
  Sender: FDA-Public Use
  Company Number: US-BRISTOL-MYERS SQUIBB COMPANY-17384876

PATIENT
  Age: 76 Year
  Sex: Male
  Weight: 84.58 kg

DRUGS (25)
  1. CISPLATIN [Suspect]
     Indication: PHARYNGEAL CANCER
     Dosage: COURSES:1?TOTAL ADMINISTERED DOSE:205 MG?INT:05FEB13 WAS HELD
     Dates: start: 20130115, end: 20130115
  2. SENNA [Concomitant]
     Dosage: TABS
     Route: 048
  3. OMEPRAZOLE [Concomitant]
     Dosage: TABS
     Route: 048
  4. POLYETHYLENE GLYCOL [Concomitant]
     Dosage: POWDER
     Route: 048
  5. GUAIFENESIN [Concomitant]
     Indication: COUGH
     Dosage: 1DF:100MG/5ML
     Route: 048
  6. MORPHINE [Concomitant]
     Indication: PAIN
     Dosage: 1DF:10MG/ML
     Route: 048
  7. LORAZEPAM [Concomitant]
     Indication: ANXIETY
     Dosage: TABS
     Route: 048
  8. ZOFRAN [Concomitant]
     Dosage: 1DF:1TAB
     Route: 048
  9. WATER FOR INJECTION, STERILE [Concomitant]
     Route: 048
  10. LISINOPRIL [Concomitant]
     Dosage: TABS
     Route: 048
  11. ASPIRIN [Concomitant]
     Dosage: TABS
     Route: 048
  12. CHLORPROMAZINE [Concomitant]
     Route: 048
  13. PROCHLORPERAZINE [Concomitant]
     Dosage: TABS
     Route: 048
  14. DOCUSATE [Concomitant]
     Dosage: 1DF:50MG/ML?LIQUID
     Route: 048
  15. LIDOCAINE [Concomitant]
  16. MAALOX [Concomitant]
  17. BENADRYL [Concomitant]
     Dosage: 12.5MG/TSP?ELIXIR
  18. SODIUM FLUORIDE [Concomitant]
     Dosage: DENTAL GEL
  19. CHLORHEXIDINE [Concomitant]
     Dosage: 0.12% MT SOLN
  20. FENTANYL PATCH [Concomitant]
     Route: 062
  21. HYDROXYCHLOROQUINE [Concomitant]
     Dosage: 1DF:2 TABS
     Route: 048
  22. DEXAMETHASONE [Concomitant]
     Dosage: TABS
     Route: 048
  23. AZITHROMYCIN [Concomitant]
     Dosage: TABS
     Route: 048
  24. OLANZAPINE [Concomitant]
     Dosage: TABS
     Route: 048
  25. LANSOPRAZOLE [Concomitant]
     Route: 048

REACTIONS (11)
  - White blood cell count decreased [Not Recovered/Not Resolved]
  - Febrile neutropenia [Unknown]
  - Tongue oedema [Not Recovered/Not Resolved]
  - Dysphagia [Not Recovered/Not Resolved]
  - Pyrexia [Recovered/Resolved]
  - Diarrhoea [Recovered/Resolved]
  - Nausea [Recovered/Resolved]
  - Vomiting [Recovered/Resolved]
  - Delirium [Recovered/Resolved]
  - Staphylococcal infection [Unknown]
  - Odynophagia [Unknown]
